FAERS Safety Report 9375444 (Version 1)
Quarter: 2013Q2

REPORT INFORMATION
  Report Type: Spontaneous
  Country: US (occurrence: US)
  Receive Date: 20130628
  Receipt Date: 20130628
  Transmission Date: 20140414
  Serious: Yes (Congenital Anomaly)
  Sender: FDA-Public Use
  Company Number: US-GLAXOSMITHKLINE-A1028865A

PATIENT
  Age: 0 Day
  Sex: Female

DRUGS (1)
  1. PAXIL [Suspect]
     Indication: DEPRESSION
     Dosage: 30MG PER DAY
     Route: 064
     Dates: start: 200104, end: 200110

REACTIONS (2)
  - Ventricular septal defect [Recovered/Resolved]
  - Foetal exposure during pregnancy [Unknown]
